FAERS Safety Report 17709531 (Version 5)
Quarter: 2020Q3

REPORT INFORMATION
  Report Type: Report from Study
  Country: CA (occurrence: CA)
  Receive Date: 20200427
  Receipt Date: 20200729
  Transmission Date: 20201102
  Serious: Yes (Other)
  Sender: FDA-Public Use
  Company Number: CA-UCBSA-2020017126

PATIENT
  Age: 24 Year
  Sex: Female

DRUGS (4)
  1. CERTOLIZUMAB PEGOL AUTOCLICKS [Suspect]
     Active Substance: CERTOLIZUMAB PEGOL
     Indication: ANKYLOSING SPONDYLITIS
     Dosage: 200 MILLIGRAM, EV 2 WEEKS(QOW)
     Route: 058
     Dates: start: 2020
  2. COPPER IUD [Concomitant]
     Active Substance: COPPER
     Indication: PRODUCT USED FOR UNKNOWN INDICATION
     Dosage: UNK
     Dates: start: 2019
  3. CERTOLIZUMAB PEGOL AUTOCLICKS [Suspect]
     Active Substance: CERTOLIZUMAB PEGOL
     Indication: RHEUMATOID ARTHRITIS
     Dosage: 400 MILLIGRAM, EV 2 WEEKS(QOW)
     Route: 058
     Dates: start: 20200420, end: 2020
  4. PREDNISONE. [Concomitant]
     Active Substance: PREDNISONE
     Indication: PRODUCT USED FOR UNKNOWN INDICATION

REACTIONS (13)
  - Pyrexia [Recovering/Resolving]
  - Gastric ulcer haemorrhage [Recovering/Resolving]
  - Abdominal pain upper [Not Recovered/Not Resolved]
  - Mammogram abnormal [Unknown]
  - Arthralgia [Recovering/Resolving]
  - Eye pain [Recovered/Resolved]
  - Injection site discolouration [Unknown]
  - Ocular hyperaemia [Recovering/Resolving]
  - Rash erythematous [Recovering/Resolving]
  - Vomiting [Recovering/Resolving]
  - Nausea [Recovering/Resolving]
  - Dyspepsia [Recovering/Resolving]
  - Infection [Unknown]

NARRATIVE: CASE EVENT DATE: 2020
